FAERS Safety Report 11791201 (Version 2)
Quarter: 2015Q4

REPORT INFORMATION
  Report Type: Spontaneous
  Country: US (occurrence: US)
  Receive Date: 20151201
  Receipt Date: 20151204
  Transmission Date: 20160305
  Serious: Yes (Hospitalization, Other)
  Sender: FDA-Public Use
  Company Number: US-PFIZER INC-2015404622

PATIENT
  Age: 37 Year
  Sex: Female
  Weight: 65 kg

DRUGS (1)
  1. LYRICA [Suspect]
     Active Substance: PREGABALIN
     Indication: NEURALGIA
     Dosage: 100 MG, 3X/DAY
     Route: 048
     Dates: start: 20150922

REACTIONS (3)
  - Pathological fracture [Unknown]
  - Pain [Unknown]
  - Product use issue [Unknown]

NARRATIVE: CASE EVENT DATE: 20150922
